FAERS Safety Report 5699760-1 (Version None)
Quarter: 2008Q2

REPORT INFORMATION
  Report Type: 
  Country: None (occurrence: None)
  Receive Date: 20080408
  Receipt Date: 20080408
  Transmission Date: 20081010
  Serious: Yes (Life-Threatening)
  Sender: FDA-Public Use
  Company Number: None

PATIENT
  Age: 40 Year
  Sex: Female
  Weight: 68.0396 kg

DRUGS (1)
  1. SINGULAIR [Suspect]
     Dosage: 1 PILL 1 DAILY PO
     Route: 048
     Dates: start: 20080102, end: 20080310

REACTIONS (2)
  - OBSESSIVE THOUGHTS [None]
  - SUICIDAL IDEATION [None]
